FAERS Safety Report 19520312 (Version 1)
Quarter: 2021Q3

REPORT INFORMATION
  Report Type: Spontaneous
  Country: MY (occurrence: MY)
  Receive Date: 20210712
  Receipt Date: 20210712
  Transmission Date: 20211014
  Serious: Yes (Other)
  Sender: FDA-Public Use
  Company Number: MY-MYLANLABS-2021M1040034

PATIENT
  Age: 31 Year
  Sex: Male

DRUGS (1)
  1. CELOVAN [Suspect]
     Active Substance: VANCOMYCIN
     Indication: BACTERAEMIA
     Dosage: 1 GRAM, BID
     Route: 042

REACTIONS (6)
  - Body temperature increased [Unknown]
  - Creatinine renal clearance decreased [Unknown]
  - Tachypnoea [Unknown]
  - Oxygen saturation decreased [Unknown]
  - Neutrophil count decreased [Unknown]
  - White blood cell count decreased [Unknown]
